FAERS Safety Report 6198711-3 (Version None)
Quarter: 2009Q2

REPORT INFORMATION
  Report Type: 
  Country: None (occurrence: None)
  Receive Date: 20090519
  Receipt Date: 20090519
  Transmission Date: 20091009
  Serious: Yes (Hospitalization)
  Sender: FDA-Public Use
  Company Number: None

PATIENT
  Sex: Male
  Weight: 92.73 kg

DRUGS (14)
  1. CETUXIMAB [Suspect]
     Indication: HEAD AND NECK CANCER
     Dosage: Q WEEK IV
     Route: 042
     Dates: start: 20090407, end: 20090512
  2. ALIMTA [Suspect]
     Indication: HEAD AND NECK CANCER
     Dosage: Q 3 WEEKS IV
     Route: 042
     Dates: start: 20090414, end: 20090505
  3. AVASTIN [Suspect]
     Indication: HEAD AND NECK CANCER
     Dosage: Q 3 WEEKS IV
     Route: 042
     Dates: start: 20090414, end: 20090505
  4. ROXICET [Concomitant]
  5. CIPRO [Concomitant]
  6. DECADRON [Concomitant]
  7. FENTANYL [Concomitant]
  8. FOLATE [Concomitant]
  9. HYZAAR [Concomitant]
  10. ATIVAN [Concomitant]
  11. MINOCYCLINE HCL [Concomitant]
  12. NIACIN [Concomitant]
  13. POTASSIUM CHLORIDE [Concomitant]
  14. AMBIEN [Concomitant]

REACTIONS (3)
  - CONFUSIONAL STATE [None]
  - DEHYDRATION [None]
  - MUCOSAL INFLAMMATION [None]
